FAERS Safety Report 9807746 (Version 1)
Quarter: 2014Q1

REPORT INFORMATION
  Report Type: Spontaneous
  Country: US (occurrence: US)
  Receive Date: 20140110
  Receipt Date: 20140110
  Transmission Date: 20141002
  Serious: No
  Sender: FDA-Public Use
  Company Number: US-BAYER-2014-004533

PATIENT
  Age: 22 Year
  Sex: Male
  Weight: 77 kg

DRUGS (3)
  1. ALEVE CAPLET [Suspect]
     Indication: TOOTHACHE
     Dosage: 1 DF, UNK
     Route: 048
  2. ADVAIR [Concomitant]
  3. SINGULAIR [Concomitant]

REACTIONS (9)
  - Dyspnoea [Recovered/Resolved]
  - Nausea [Not Recovered/Not Resolved]
  - Wheezing [Recovered/Resolved]
  - Dizziness [Not Recovered/Not Resolved]
  - Ear pruritus [Recovered/Resolved]
  - Sneezing [Not Recovered/Not Resolved]
  - Lacrimation increased [Not Recovered/Not Resolved]
  - Skin warm [Not Recovered/Not Resolved]
  - Expired drug administered [None]
